FAERS Safety Report 13424838 (Version 1)
Quarter: 2017Q2

REPORT INFORMATION
  Report Type: Spontaneous
  Country: US (occurrence: US)
  Receive Date: 20170410
  Receipt Date: 20170410
  Transmission Date: 20170830
  Serious: Yes (Other)
  Sender: FDA-Public Use
  Company Number: US-GLAXOSMITHKLINE-US2017047838

PATIENT
  Sex: Female

DRUGS (1)
  1. SENSODYNE PRONAMEL GENTLE WHITENING [Suspect]
     Active Substance: POTASSIUM NITRATE\SODIUM FLUORIDE
     Indication: SENSITIVITY OF TEETH
     Dosage: UNK
     Dates: start: 201703

REACTIONS (6)
  - Tooth abscess [Unknown]
  - Toothache [Unknown]
  - Dental caries [Unknown]
  - Local swelling [Unknown]
  - Expired product administered [Unknown]
  - Expired device used [Unknown]

NARRATIVE: CASE EVENT DATE: 20170301
